FAERS Safety Report 11432403 (Version 1)
Quarter: 2015Q3

REPORT INFORMATION
  Report Type: Report from Study
  Country: US (occurrence: US)
  Receive Date: 20150828
  Receipt Date: 20150828
  Transmission Date: 20151125
  Serious: Yes (Hospitalization)
  Sender: FDA-Public Use
  Company Number: US-JNJFOC-20150820578

PATIENT
  Sex: Male

DRUGS (1)
  1. SIMPONI [Suspect]
     Active Substance: GOLIMUMAB
     Indication: RHEUMATOID ARTHRITIS
     Dosage: 50 MG STRENGTH
     Route: 058
     Dates: end: 201503

REACTIONS (3)
  - Sepsis [Recovered/Resolved]
  - Cystitis [Recovered/Resolved]
  - Malaise [Recovered/Resolved]
